FAERS Safety Report 14274897 (Version 6)
Quarter: 2019Q1

REPORT INFORMATION
  Report Type: Spontaneous
  Country: SK (occurrence: SK)
  Receive Date: 20171212
  Receipt Date: 20190225
  Transmission Date: 20190417
  Serious: Yes (Life-Threatening, Hospitalization, Other)
  Sender: FDA-Public Use
  Company Number: SK-ACCORD-061687

PATIENT
  Age: 53 Year
  Sex: Female

DRUGS (3)
  1. CICLOSPORIN [Suspect]
     Active Substance: CYCLOSPORINE
     Indication: IMMUNOSUPPRESSION
     Dosage: 25 MG-0-50 MG
  2. METHYLPREDNISOLONE. [Suspect]
     Active Substance: METHYLPREDNISOLONE
     Indication: IMMUNOSUPPRESSION
  3. MYCOPHENOLIC ACID. [Suspect]
     Active Substance: MYCOPHENOLIC ACID
     Indication: IMMUNOSUPPRESSION
     Dosage: 1000 MG-0-1000 MG

REACTIONS (15)
  - Pseudomonas infection [Recovered/Resolved]
  - Septic shock [Recovered/Resolved]
  - Pneumonia [Recovered/Resolved]
  - Heart rate increased [Recovered/Resolved]
  - Pneumothorax [Unknown]
  - Metabolic acidosis [Recovered/Resolved]
  - Drug level decreased [Recovered/Resolved]
  - Acute respiratory distress syndrome [Recovered/Resolved]
  - Staphylococcal abscess [Recovered/Resolved]
  - Respiratory acidosis [Recovered/Resolved]
  - Tuberculosis gastrointestinal [Recovered/Resolved]
  - Multiple organ dysfunction syndrome [Recovered/Resolved]
  - Acute kidney injury [Recovered/Resolved]
  - Pericardial effusion [Recovered/Resolved]
  - Aspergillus infection [Unknown]
